FAERS Safety Report 7715079-9 (Version None)
Quarter: 2011Q3

REPORT INFORMATION
  Report Type: 
  Country: None (occurrence: None)
  Receive Date: 20110829
  Receipt Date: 20110817
  Transmission Date: 20111222
  Serious: Yes (Hospitalization)
  Sender: FDA-Public Use
  Company Number: PHHY2011TW70849

PATIENT
  Sex: Female
  Weight: 47.3 kg

DRUGS (1)
  1. ZOLEDRONIC [Suspect]
     Indication: METASTASES TO BONE
     Dosage: 4 MG, UNK
     Route: 042
     Dates: start: 20101102, end: 20110704

REACTIONS (4)
  - TERMINAL STATE [None]
  - JAUNDICE [None]
  - NEOPLASM MALIGNANT [None]
  - METASTASES TO LIVER [None]
